FAERS Safety Report 14286383 (Version 1)
Quarter: 2017Q4

REPORT INFORMATION
  Report Type: Spontaneous
  Country: IT (occurrence: IT)
  Receive Date: 20171214
  Receipt Date: 20171214
  Transmission Date: 20180321
  Serious: Yes (Hospitalization)
  Sender: FDA-Public Use
  Company Number: IT-ACCORD-062129

PATIENT
  Age: 74 Year
  Sex: Female

DRUGS (12)
  1. ARIXTRA [Suspect]
     Active Substance: FONDAPARINUX SODIUM
     Indication: THROMBOSIS PROPHYLAXIS
     Route: 058
  2. ALPRAZOLAM. [Concomitant]
     Active Substance: ALPRAZOLAM
  3. FUROSEMIDE. [Concomitant]
     Active Substance: FUROSEMIDE
  4. GLICLAZIDE [Concomitant]
     Active Substance: GLICLAZIDE
  5. EUCREAS [Concomitant]
     Active Substance: METFORMIN HYDROCHLORIDE\VILDAGLIPTIN
  6. CLOPIDOGREL [Suspect]
     Active Substance: CLOPIDOGREL BISULFATE
     Indication: ACUTE CORONARY SYNDROME
     Route: 048
  7. DILZENE [Concomitant]
     Active Substance: DILTIAZEM HYDROCHLORIDE
  8. ENALAPRIL [Concomitant]
     Active Substance: ENALAPRIL
  9. PANTOPRAZOLE [Concomitant]
     Active Substance: PANTOPRAZOLE
  10. AMIODARONE [Concomitant]
     Active Substance: AMIODARONE
  11. ATORVASTATIN [Concomitant]
     Active Substance: ATORVASTATIN
  12. CANRENOIC ACID [Concomitant]
     Active Substance: CANRENOIC ACID

REACTIONS (4)
  - Anaemia [Not Recovered/Not Resolved]
  - Abdominal pain upper [Not Recovered/Not Resolved]
  - Melaena [Not Recovered/Not Resolved]
  - Diarrhoea [Not Recovered/Not Resolved]

NARRATIVE: CASE EVENT DATE: 20170415
